FAERS Safety Report 7116113-X (Version None)
Quarter: 2010Q4

REPORT INFORMATION
  Report Type: 
  Country: None (occurrence: None)
  Receive Date: 20101122
  Receipt Date: 20101108
  Transmission Date: 20110411
  Serious: Yes (Hospitalization)
  Sender: FDA-Public Use
  Company Number: PHHO2010BR16269

PATIENT
  Sex: Male
  Weight: 143.7 kg

DRUGS (4)
  1. AMN107 AMN+CAP [Suspect]
     Indication: CHRONIC MYELOID LEUKAEMIA
     Dosage: 400 MG, BID
     Route: 048
     Dates: start: 20060116, end: 20101023
  2. AMN107 AMN+CAP [Suspect]
     Dosage: UNK
     Dates: start: 20101024, end: 20101027
  3. AMN107 AMN+CAP [Suspect]
     Dosage: UNK
     Dates: start: 20101028
  4. ENALAPRIL [Concomitant]

REACTIONS (5)
  - ACUTE MYOCARDIAL INFARCTION [None]
  - ANGIOPLASTY [None]
  - MALAISE [None]
  - PNEUMONIA [None]
  - STENT PLACEMENT [None]
